FAERS Safety Report 9979814 (Version 1)
Quarter: 2014Q1

REPORT INFORMATION
  Report Type: Report from Study
  Country: US (occurrence: US)
  Receive Date: 20140306
  Receipt Date: 20140306
  Transmission Date: 20141002
  Serious: No
  Sender: FDA-Public Use
  Company Number: US-ABBVIE-13P-163-1170282-00

PATIENT
  Age: 33 Year
  Sex: Female

DRUGS (5)
  1. HUMIRA [Suspect]
     Indication: CROHN^S DISEASE
     Dates: start: 20130927
  2. ADVAIR [Concomitant]
     Indication: PRODUCT USED FOR UNKNOWN INDICATION
  3. NEBULIZER BREATHING TREATMENTS [Concomitant]
     Indication: ASTHMA
     Dosage: EVERY FOUR HOURS AS NEEDED.
  4. RESCUE [Concomitant]
     Indication: ASTHMA
     Route: 055
  5. ZYRTEC [Concomitant]
     Indication: SEASONAL ALLERGY
     Dosage: DAILY

REACTIONS (2)
  - Cough [Not Recovered/Not Resolved]
  - Asthma [Not Recovered/Not Resolved]
